FAERS Safety Report 20084283 (Version 1)
Quarter: 2021Q4

REPORT INFORMATION
  Report Type: Spontaneous
  Country: US (occurrence: US)
  Receive Date: 20211118
  Receipt Date: 20211118
  Transmission Date: 20220303
  Serious: Yes (Hospitalization, Other)
  Sender: FDA-Public Use
  Company Number: US-Accord-245176

PATIENT
  Age: 54 Year
  Sex: Female

DRUGS (7)
  1. DOCETAXEL [Suspect]
     Active Substance: DOCETAXEL
     Indication: Invasive ductal breast carcinoma
     Dosage: EVERY 3 WEEKS FOR 6 CYCLES
  2. CARBOPLATIN [Concomitant]
     Active Substance: CARBOPLATIN
     Indication: Invasive ductal breast carcinoma
     Dosage: EVERY 3 WEEKS FOR 6 CYCLES
  3. TRASTUZUMAB [Concomitant]
     Active Substance: TRASTUZUMAB
     Indication: Invasive ductal breast carcinoma
     Dosage: EVERY 3 WEEKS FOR 6 CYCLES
  4. PERTUZUMAB [Concomitant]
     Active Substance: PERTUZUMAB
     Indication: Invasive ductal breast carcinoma
     Dosage: EVERY 3 WEEKS FOR 6 CYCLES
  5. DEXAMETHASONE [Concomitant]
     Active Substance: DEXAMETHASONE
     Indication: Premedication
  6. FILGRASTIM [Concomitant]
     Active Substance: FILGRASTIM
     Indication: Febrile neutropenia
  7. IBUPROFEN [Concomitant]
     Active Substance: IBUPROFEN
     Dosage: INTERMITTENTLY, INCREASED TO APPROXIMATELY 400 MG OF IBUPROFEN A DAY

REACTIONS (3)
  - Gastric disorder [Recovered/Resolved]
  - Alopecia [Unknown]
  - Upper gastrointestinal haemorrhage [Recovered/Resolved]
